FAERS Safety Report 17954812 (Version 4)
Quarter: 2021Q2

REPORT INFORMATION
  Report Type: Spontaneous
  Country: US (occurrence: US)
  Receive Date: 20200629
  Receipt Date: 20210629
  Transmission Date: 20210717
  Serious: Yes (Other)
  Sender: FDA-Public Use
  Company Number: US-GILEAD-2020-0476665

PATIENT
  Age: 46 Year
  Sex: Male
  Weight: 94.79 kg

DRUGS (20)
  1. ALENDRONATE [Concomitant]
     Active Substance: ALENDRONATE SODIUM
  2. ASPIRIN [ACETYLSALICYLIC ACID] [Concomitant]
     Active Substance: ASPIRIN
  3. PREDNISONE. [Concomitant]
     Active Substance: PREDNISONE
  4. JULUCA [Concomitant]
     Active Substance: DOLUTEGRAVIR SODIUM\RILPIVIRINE HYDROCHLORIDE
  5. TIVICAY [Concomitant]
     Active Substance: DOLUTEGRAVIR SODIUM
  6. ODEFSEY [Concomitant]
     Active Substance: EMTRICITABINE\RILPIVIRINE HYDROCHLORIDE\TENOFOVIR ALAFENAMIDE FUMARATE
  7. ACYCLOVIR [ACICLOVIR] [Concomitant]
     Active Substance: ACYCLOVIR
  8. PENICILLIN [PENICILLIN NOS] [Concomitant]
     Active Substance: PENICILLIN
  9. TRIAMCINOLONE [Concomitant]
     Active Substance: TRIAMCINOLONE
  10. EDURANT [Concomitant]
     Active Substance: RILPIVIRINE HYDROCHLORIDE
  11. DILANTIN [Concomitant]
     Active Substance: PHENYTOIN
  12. WARFARIN [Concomitant]
     Active Substance: WARFARIN
  13. ACETAMINOPHEN. [Concomitant]
     Active Substance: ACETAMINOPHEN
  14. PANTOPRAZOLE [Concomitant]
     Active Substance: PANTOPRAZOLE
  15. BACTRIM [Concomitant]
     Active Substance: SULFAMETHOXAZOLE\TRIMETHOPRIM
  16. FAMOTIDINE. [Concomitant]
     Active Substance: FAMOTIDINE
  17. ATRIPLA [Suspect]
     Active Substance: EFAVIRENZ\EMTRICITABINE\TENOFOVIR DISOPROXIL FUMARATE
     Indication: HIV INFECTION
     Dosage: UNK
     Route: 048
     Dates: start: 2017, end: 2017
  18. COMPLERA [Suspect]
     Active Substance: EMTRICITABINE\RILPIVIRINE HYDROCHLORIDE\TENOFOVIR DISOPROXIL FUMARATE
     Indication: HIV INFECTION
     Dosage: UNK
     Route: 048
     Dates: start: 2011, end: 20171027
  19. DEXAMETHASONE. [Concomitant]
     Active Substance: DEXAMETHASONE
  20. RANITIDINE. [Concomitant]
     Active Substance: RANITIDINE

REACTIONS (13)
  - Wrist fracture [Recovered/Resolved]
  - Bone density decreased [Unknown]
  - Osteoporosis [Not Recovered/Not Resolved]
  - Jaw fracture [Recovered/Resolved]
  - Fall [Unknown]
  - Anxiety [Not Recovered/Not Resolved]
  - Wrist fracture [Recovered/Resolved]
  - Tooth loss [Unknown]
  - Depression [Not Recovered/Not Resolved]
  - Lower limb fracture [Recovered/Resolved]
  - Wrist fracture [Unknown]
  - Osteopenia [Unknown]
  - Rib fracture [Unknown]

NARRATIVE: CASE EVENT DATE: 2013
